FAERS Safety Report 5161218-6 (Version None)
Quarter: 2006Q4

REPORT INFORMATION
  Report Type: 
  Country: None (occurrence: None)
  Receive Date: 20061130
  Receipt Date: 20060823
  Transmission Date: 20070319
  Serious: No
  Sender: FDA-Public Use
  Company Number: US-BRISTOL-MYERS SQUIBB COMPANY-13486337

PATIENT
  Age: 40 Year
  Sex: Male
  Weight: 87 kg

DRUGS (9)
  1. ERBITUX [Suspect]
     Indication: COLORECTAL CANCER STAGE IV
     Route: 042
     Dates: start: 20060727, end: 20060727
  2. REGLAN [Concomitant]
  3. INSULIN [Concomitant]
  4. DECADRON [Concomitant]
     Indication: PREMEDICATION
  5. BENADRYL [Concomitant]
     Indication: PREMEDICATION
  6. PEPCID [Concomitant]
     Indication: PREMEDICATION
  7. ZOFRAN [Concomitant]
     Indication: PREMEDICATION
  8. MAGNESIUM [Concomitant]
  9. ZOMETA [Concomitant]

REACTIONS (4)
  - CHILLS [None]
  - NAUSEA [None]
  - RASH [None]
  - STOMATITIS [None]
